FAERS Safety Report 13682817 (Version 1)
Quarter: 2017Q2

REPORT INFORMATION
  Report Type: Spontaneous
  Country: US (occurrence: US)
  Receive Date: 20170623
  Receipt Date: 20170623
  Transmission Date: 20170830
  Serious: No
  Sender: FDA-Public Use
  Company Number: US-MALLINCKRODT-T201606623

PATIENT
  Sex: Female

DRUGS (3)
  1. COPAXONE [Concomitant]
     Active Substance: GLATIRAMER ACETATE
     Dosage: THREE TIMES A WEEK
  2. H.P. ACTHAR [Suspect]
     Active Substance: CORTICOTROPIN
     Indication: MULTIPLE SCLEROSIS
     Dosage: 80 UNITS, QD, 5 DAYS
     Route: 065
     Dates: start: 20130721, end: 20130725
  3. H.P. ACTHAR [Suspect]
     Active Substance: CORTICOTROPIN
     Indication: TRIGEMINAL NEURALGIA
     Dosage: 80 UNITS, QD, 5 DAYS
     Route: 065
     Dates: start: 20170112, end: 20170116

REACTIONS (5)
  - Bronchitis viral [Unknown]
  - Condition aggravated [Unknown]
  - Glaucoma [Unknown]
  - Osteoporosis [Unknown]
  - Hypertension [Unknown]
